FAERS Safety Report 5588155-7 (Version None)
Quarter: 2008Q1

REPORT INFORMATION
  Report Type: 
  Country: None (occurrence: None)
  Receive Date: 20080109
  Receipt Date: 20080109
  Transmission Date: 20080703
  Serious: Yes (Life-Threatening, Hospitalization)
  Sender: FDA-Public Use
  Company Number: None

PATIENT
  Age: 81 Year
  Sex: Male
  Weight: 83 kg

DRUGS (1)
  1. ENALAPRIL MALEATE [Suspect]
     Indication: CARDIAC FAILURE CONGESTIVE
     Dosage: 2.5MG EVERY DAY PO
     Route: 048
     Dates: start: 20070909, end: 20071010

REACTIONS (5)
  - ASTHENIA [None]
  - BLOOD POTASSIUM INCREASED [None]
  - DEHYDRATION [None]
  - FATIGUE [None]
  - RENAL FAILURE ACUTE [None]
